FAERS Safety Report 15746405 (Version 2)
Quarter: 2019Q2

REPORT INFORMATION
  Report Type: Spontaneous
  Country: US (occurrence: US)
  Receive Date: 20181220
  Receipt Date: 20190424
  Transmission Date: 20190711
  Serious: Yes (Disabling, Other)
  Sender: FDA-Public Use
  Company Number: PHEH2018US053393

PATIENT
  Sex: Female

DRUGS (1)
  1. COSENTYX [Suspect]
     Active Substance: SECUKINUMAB
     Indication: PSORIASIS
     Dosage: 300 MG, QW
     Route: 058
     Dates: start: 201804, end: 201807

REACTIONS (14)
  - Acanthamoeba infection [Recovered/Resolved with Sequelae]
  - Visual field defect [Unknown]
  - Ocular hyperaemia [Unknown]
  - Visual acuity tests abnormal [Unknown]
  - Lacrimation increased [Unknown]
  - Eyelid ptosis [Unknown]
  - Photophobia [Unknown]
  - Blindness [Not Recovered/Not Resolved]
  - Eye pruritus [Unknown]
  - Vision blurred [Unknown]
  - Eye pain [Unknown]
  - Eye irritation [Unknown]
  - Eyelid oedema [Unknown]
  - Foreign body sensation in eyes [Unknown]

NARRATIVE: CASE EVENT DATE: 20180501
